FAERS Safety Report 7983384-7 (Version None)
Quarter: 2011Q4

REPORT INFORMATION
  Report Type: 
  Country: None (occurrence: None)
  Receive Date: 20111215
  Receipt Date: 20111206
  Transmission Date: 20120403
  Serious: Yes (Other)
  Sender: FDA-Public Use
  Company Number: US-BAXTER-2011BH033111

PATIENT
  Age: 22 Month
  Sex: Male
  Weight: 15 kg

DRUGS (13)
  1. GAMMAGARD LIQUID [Suspect]
     Route: 042
     Dates: start: 20110927
  2. ZYRTEC [Concomitant]
     Indication: PREMEDICATION
     Route: 048
     Dates: start: 20110929, end: 20111019
  3. GAMMAGARD LIQUID [Suspect]
     Route: 042
     Dates: start: 20110803
  4. GAMMAGARD LIQUID [Suspect]
     Route: 042
     Dates: start: 20111001
  5. GAMMAGARD LIQUID [Suspect]
     Route: 042
     Dates: start: 20110721
  6. GAMMAGARD LIQUID [Suspect]
     Route: 042
     Dates: start: 20110721
  7. BENADRYL ^WARNER-LAMBERT^               /USA/ [Concomitant]
     Indication: PREMEDICATION
     Route: 048
     Dates: start: 20110929, end: 20111019
  8. GAMMAGARD LIQUID [Suspect]
     Route: 042
     Dates: start: 20110721
  9. GAMMAGARD LIQUID [Suspect]
     Route: 042
     Dates: start: 20110803
  10. GAMMAGARD LIQUID [Suspect]
     Route: 042
     Dates: start: 20110927
  11. GAMMAGARD LIQUID [Suspect]
     Indication: IMMUNODEFICIENCY COMMON VARIABLE
     Route: 042
     Dates: start: 20110721
  12. GAMMAGARD LIQUID [Suspect]
     Route: 042
     Dates: start: 20111001
  13. ACETAMINOPHEN [Concomitant]
     Indication: PREMEDICATION
     Route: 048
     Dates: start: 20111019, end: 20111019

REACTIONS (11)
  - WHEEZING [None]
  - DECREASED APPETITE [None]
  - CONDITION AGGRAVATED [None]
  - DIARRHOEA [None]
  - BLISTER [None]
  - URINE OUTPUT DECREASED [None]
  - LETHARGY [None]
  - DARK CIRCLES UNDER EYES [None]
  - HEADACHE [None]
  - ABDOMINAL PAIN UPPER [None]
  - URTICARIA [None]
